FAERS Safety Report 14374732 (Version 2)
Quarter: 2018Q1

REPORT INFORMATION
  Report Type: Spontaneous
  Country: US (occurrence: US)
  Receive Date: 20180111
  Receipt Date: 20180116
  Transmission Date: 20180509
  Serious: No
  Sender: FDA-Public Use
  Company Number: US-BAYER-2018-005772

PATIENT
  Age: 2 Year
  Sex: Male

DRUGS (2)
  1. CLARITIN [Suspect]
     Active Substance: LORATADINE
     Dosage: 2 DF, IN 12 HOURS (ONE AT 6AM AND ONE AT 6PM)
     Route: 065
     Dates: start: 20180110, end: 20180110
  2. CLARITIN [Suspect]
     Active Substance: LORATADINE
     Dosage: 2 DF, IN 12 HOURS (ONE AT 6AM AND ONE AT 6PM)
     Route: 065
     Dates: start: 20180109

REACTIONS (1)
  - Extra dose administered [Recovered/Resolved]

NARRATIVE: CASE EVENT DATE: 20180110
